FAERS Safety Report 26075474 (Version 1)
Quarter: 2025Q4

REPORT INFORMATION
  Report Type: Spontaneous
  Country: US (occurrence: None)
  Receive Date: 20251121
  Receipt Date: 20251121
  Transmission Date: 20260118
  Serious: Yes (Disabling)
  Sender: FDA-CTU
  Company Number: None

PATIENT
  Age: 63 Year
  Sex: Male
  Weight: 112.5 kg

DRUGS (6)
  1. CIPRO [Suspect]
     Active Substance: CIPROFLOXACIN HYDROCHLORIDE
     Indication: Urinary tract infection
     Dosage: OTHER QUANTITY : 20 TABLET(S);?FREQUENCY : DAILY;?
     Route: 048
     Dates: start: 20251110, end: 20251117
  2. Diclofenac 75 mg 2 times daily [Concomitant]
  3. Omeprazole 20 mg 2 times daily [Concomitant]
  4. Tamsulosin 0.4 mg 1 daily [Concomitant]
  5. Doxycycline Hyclate 100 mg 2 daily [Concomitant]
  6. Clinical strength Prostate Health 2 daily. brand name: NOW [Concomitant]

REACTIONS (6)
  - Gait disturbance [None]
  - Weight bearing difficulty [None]
  - Peripheral swelling [None]
  - Tendon disorder [None]
  - Product communication issue [None]
  - Walking aid user [None]

NARRATIVE: CASE EVENT DATE: 20251117
